FAERS Safety Report 18919518 (Version 1)
Quarter: 2021Q1

REPORT INFORMATION
  Report Type: Spontaneous
  Country: US (occurrence: US)
  Receive Date: 20210221
  Receipt Date: 20210221
  Transmission Date: 20210420
  Serious: No
  Sender: FDA-Public Use
  Company Number: US-GLAXOSMITHKLINE-USCH2021GSK005833

PATIENT
  Sex: Female
  Weight: 113 kg

DRUGS (1)
  1. IBUPROFEN. [Suspect]
     Active Substance: IBUPROFEN
     Indication: PYREXIA
     Dosage: 200 MG, 6 IN DAY
     Route: 048
     Dates: start: 20210120

REACTIONS (1)
  - Therapeutic product effect incomplete [Unknown]
